FAERS Safety Report 17361694 (Version 2)
Quarter: 2024Q2

REPORT INFORMATION
  Report Type: Other
  Country: US (occurrence: None)
  Receive Date: 20200203
  Receipt Date: 20240529
  Transmission Date: 20240716
  Serious: Yes (Hospitalization)
  Sender: FDA-Public Use
  Company Number: US-ROCHE-2534623

PATIENT
  Sex: Female

DRUGS (1)
  1. OCREVUS [Suspect]
     Active Substance: OCRELIZUMAB
     Indication: Multiple sclerosis
     Dosage: 27/FEB/2019, 28/AUG/2019, 5/SEP/2018, 22/AUG/2018
     Route: 042
     Dates: start: 20180822

REACTIONS (2)
  - Haematological infection [Unknown]
  - Urinary tract infection [Unknown]
